FAERS Safety Report 7189849-2 (Version None)
Quarter: 2010Q4

REPORT INFORMATION
  Report Type: 
  Country: None (occurrence: None)
  Receive Date: 20101123
  Receipt Date: 20100923
  Transmission Date: 20110411
  Serious: No
  Sender: FDA-Public Use
  Company Number: 018687

PATIENT
  Sex: Female

DRUGS (8)
  1. CIMZIA [Suspect]
     Indication: CROHN'S DISEASE
     Dosage: (400 MG 1X/4 WEEKS SUBCUTANEOUS)
     Route: 058
     Dates: start: 20091212
  2. METHOTREXATE [Concomitant]
  3. BUDESONIDE [Concomitant]
  4. ETODOLAC [Concomitant]
  5. LOTREL [Concomitant]
  6. HYOSCYAMINE [Concomitant]
  7. NEURONTIN /00949202/ [Concomitant]
  8. OMEPRAZOLE [Concomitant]

REACTIONS (2)
  - FALL [None]
  - HUMERUS FRACTURE [None]
